FAERS Safety Report 7075235-2 (Version None)
Quarter: 2010Q4

REPORT INFORMATION
  Report Type: 
  Country: None (occurrence: None)
  Receive Date: 20101030
  Receipt Date: 20100604
  Transmission Date: 20110411
  Serious: No
  Sender: FDA-Public Use
  Company Number: US-WYE-H15301810

PATIENT
  Age: 73 Year
  Sex: Male
  Weight: 90.8 kg

DRUGS (4)
  1. ADVIL PM [Suspect]
     Indication: INSOMNIA
     Dosage: 2 CAPLETS NIGHTLY
     Route: 048
     Dates: start: 20100501, end: 20100516
  2. PROCHLORPERAZINE MALEATE [Concomitant]
  3. PREDNISONE [Concomitant]
  4. GLIPIZIDE [Concomitant]

REACTIONS (1)
  - DRUG INEFFECTIVE [None]
